FAERS Safety Report 5997434-0 (Version None)
Quarter: 2008Q4

REPORT INFORMATION
  Report Type: 
  Country: None (occurrence: None)
  Receive Date: 20081212
  Receipt Date: 20081112
  Transmission Date: 20090506
  Serious: Yes (Hospitalization)
  Sender: FDA-Public Use
  Company Number: US-ABBOTT-08P-163-0487298-00

PATIENT
  Sex: Female
  Weight: 43.13 kg

DRUGS (7)
  1. HUMIRA [Suspect]
     Indication: CROHN'S DISEASE
     Route: 058
     Dates: start: 20070101, end: 20080122
  2. HUMIRA [Suspect]
     Dates: start: 20081103
  3. METRONIDAZOLE [Suspect]
     Indication: CLOSTRIDIAL INFECTION
  4. SERETIDE [Concomitant]
     Indication: ASTHMA
  5. SINCULAIR [Concomitant]
     Indication: ASTHMA
  6. PREDNISONE TAB [Concomitant]
     Indication: CROHN'S DISEASE
     Dates: end: 20080601
  7. PREDNISONE TAB [Concomitant]

REACTIONS (3)
  - ABDOMINAL PAIN UPPER [None]
  - CLOSTRIDIAL INFECTION [None]
  - CROHN'S DISEASE [None]
